FAERS Safety Report 14554365 (Version 1)
Quarter: 2018Q1

REPORT INFORMATION
  Report Type: Spontaneous
  Country: US (occurrence: US)
  Receive Date: 20180217
  Receipt Date: 20180217
  Transmission Date: 20180509
  Serious: Yes (Other)
  Sender: FDA-Public Use
  Company Number: None

PATIENT
  Sex: Male
  Weight: 7.65 kg

DRUGS (3)
  1. NORDIC NATURALS DHA KLAIRE LABS INFANT PROBIOTICS UPSPRING VITAMIN D [Concomitant]
  2. CERAVE ANTI-ITCH [Suspect]
     Active Substance: HYDROCORTISONE
     Indication: ECZEMA
     Route: 061
  3. 2% MUPIROCIN ORAL ANTIBIOTIC [Concomitant]

REACTIONS (2)
  - Skin infection [None]
  - Steroid withdrawal syndrome [None]

NARRATIVE: CASE EVENT DATE: 20180211
